FAERS Safety Report 21579801 (Version 4)
Quarter: 2022Q4

REPORT INFORMATION
  Report Type: Spontaneous
  Country: AU (occurrence: AU)
  Receive Date: 20221110
  Receipt Date: 20221125
  Transmission Date: 20230112
  Serious: Yes (Death, Hospitalization, Other)
  Sender: FDA-Public Use
  Company Number: AU-GSKCCFAPAC-Case-01605148_AE-64016

PATIENT
  Age: 40 Year
  Sex: Female

DRUGS (3)
  1. AMBRISENTAN [Suspect]
     Active Substance: AMBRISENTAN
     Indication: Pulmonary arterial hypertension
     Dosage: 10 MG, QD
     Route: 048
     Dates: start: 2012
  2. UPTRAVI [Suspect]
     Active Substance: SELEXIPAG
     Indication: Product used for unknown indication
     Dosage: 1600 UG, BID
     Route: 048
  3. WARFARIN [Suspect]
     Active Substance: WARFARIN
     Indication: Product used for unknown indication
     Dosage: UNK
     Route: 065

REACTIONS (5)
  - Pulmonary hypertension [Unknown]
  - Death [Fatal]
  - Condition aggravated [Unknown]
  - Pulmonary arterial pressure [Unknown]
  - Haemoptysis [Unknown]

NARRATIVE: CASE EVENT DATE: 20221111
